FAERS Safety Report 5960462-5 (Version None)
Quarter: 2008Q4

REPORT INFORMATION
  Report Type: 
  Country: None (occurrence: None)
  Receive Date: 20081120
  Receipt Date: 20081117
  Transmission Date: 20090506
  Serious: Yes (Hospitalization)
  Sender: FDA-Public Use
  Company Number: US-B.I. PHARMACEUTICALS,INC./RIDGEFIELD-2008-BP-17454BP

PATIENT
  Sex: Female

DRUGS (10)
  1. SPIRIVA [Suspect]
     Indication: CHRONIC OBSTRUCTIVE PULMONARY DISEASE
     Dosage: 18MCG
     Route: 055
     Dates: start: 20060101
  2. SPIRIVA [Suspect]
     Indication: EMPHYSEMA
  3. CARDIA [Concomitant]
  4. NEXIUM [Concomitant]
  5. PRAVASTATIN [Concomitant]
  6. HYDRALAZINE HCL [Concomitant]
  7. PREDNISONE TAB [Concomitant]
  8. ISOSORBIDE [Concomitant]
  9. ASPIRIN [Concomitant]
  10. FISH OIL/VITAMIN [Concomitant]

REACTIONS (4)
  - BRONCHITIS [None]
  - CARDIAC DISORDER [None]
  - DYSPNOEA [None]
  - HYPERTENSION [None]
